FAERS Safety Report 12132710 (Version 1)
Quarter: 2016Q1

REPORT INFORMATION
  Report Type: Spontaneous
  Country: US (occurrence: US)
  Receive Date: 20160301
  Receipt Date: 20160301
  Transmission Date: 20160526
  Serious: Yes (Death)
  Sender: FDA-Public Use
  Company Number: US-ACTELION-A-NJ2016-132000

PATIENT
  Age: 71 Year
  Sex: Female

DRUGS (12)
  1. LOPERAMIDE [Concomitant]
     Active Substance: LOPERAMIDE
  2. OPSUMIT [Suspect]
     Active Substance: MACITENTAN
     Indication: PULMONARY HYPERTENSION
     Dosage: 10 MG, QD
     Route: 048
     Dates: start: 20141212, end: 20160217
  3. MIRTAZAPINE. [Concomitant]
     Active Substance: MIRTAZAPINE
  4. METHOTREXATE [Concomitant]
     Active Substance: METHOTREXATE
  5. ADCIRCA [Concomitant]
     Active Substance: TADALAFIL
  6. FLUTICASONE [Concomitant]
     Active Substance: FLUTICASONE\FLUTICASONE PROPIONATE
  7. REMODULIN [Concomitant]
     Active Substance: TREPROSTINIL
  8. FAMOTIDINE. [Concomitant]
     Active Substance: FAMOTIDINE
  9. FOLIC ACID. [Concomitant]
     Active Substance: FOLIC ACID
  10. FUROSEMIDE. [Concomitant]
     Active Substance: FUROSEMIDE
  11. WARFARIN [Concomitant]
     Active Substance: WARFARIN
  12. OMEPRAZOLE. [Concomitant]
     Active Substance: OMEPRAZOLE

REACTIONS (1)
  - Death [Fatal]

NARRATIVE: CASE EVENT DATE: 20160217
